FAERS Safety Report 4651047-1 (Version None)
Quarter: 2005Q2

REPORT INFORMATION
  Report Type: 
  Country: None (occurrence: None)
  Receive Date: 20050429
  Receipt Date: 20050418
  Transmission Date: 20051028
  Serious: Yes (Hospitalization)
  Sender: FDA-Public Use
  Company Number: 2005061415

PATIENT
  Age: 66 Year
  Sex: Male
  Weight: 97.5234 kg

DRUGS (7)
  1. BEXTRA [Suspect]
     Indication: POLYARTHRITIS
     Dosage: ORAL
     Route: 048
     Dates: start: 20040101, end: 20040801
  2. CELEBREX [Suspect]
     Indication: POLYARTHRITIS
     Dosage: ORAL
     Route: 048
     Dates: start: 20010101, end: 20010101
  3. ROFECOXIB [Suspect]
     Indication: POLYARTHRITIS
     Dosage: ORAL
     Route: 048
     Dates: start: 20010101
  4. SERTRALINE HCL [Concomitant]
  5. OLANZAPINE [Concomitant]
  6. ALPRAZOLAM [Concomitant]
  7. MIRTAZAPINE [Concomitant]

REACTIONS (10)
  - ATRIAL FIBRILLATION [None]
  - CROHN'S DISEASE [None]
  - EATING DISORDER [None]
  - FLUID RETENTION [None]
  - HYPERTENSION [None]
  - MYOCARDIAL INFARCTION [None]
  - NAUSEA [None]
  - PAIN [None]
  - PALPITATIONS [None]
  - STOMACH DISCOMFORT [None]
